FAERS Safety Report 5449634-6 (Version None)
Quarter: 2007Q3

REPORT INFORMATION
  Report Type: 
  Country: None (occurrence: None)
  Receive Date: 20070912
  Receipt Date: 20070904
  Transmission Date: 20080115
  Serious: Yes (Other)
  Sender: FDA-Public Use
  Company Number: PHEH2007US11850

PATIENT
  Sex: Female

DRUGS (6)
  1. ENABLEX [Suspect]
     Dosage: 3.75 MG, QD
     Route: 048
  2. ENABLEX [Suspect]
     Dosage: 7.5 MG, QD
     Route: 048
  3. PLAVIX [Concomitant]
  4. GALANTAMINE HYDROBROMIDE [Concomitant]
  5. ZOLOFT [Concomitant]
  6. ASPIRIN [Concomitant]

REACTIONS (5)
  - AMNESIA [None]
  - BLOOD PRESSURE INCREASED [None]
  - CEREBROVASCULAR ACCIDENT [None]
  - CONDITION AGGRAVATED [None]
  - VISUAL DISTURBANCE [None]
